FAERS Safety Report 12476316 (Version 1)
Quarter: 2016Q2

REPORT INFORMATION
  Report Type: Spontaneous
  Country: DE (occurrence: DE)
  Receive Date: 20160617
  Receipt Date: 20160617
  Transmission Date: 20160815
  Serious: Yes (Hospitalization)
  Sender: FDA-Public Use
  Company Number: DE-PFIZER INC-2016298921

PATIENT

DRUGS (1)
  1. SORTIS [Suspect]
     Active Substance: ATORVASTATIN

REACTIONS (1)
  - Thromboangiitis obliterans [Unknown]
